FAERS Safety Report 19057148 (Version 1)
Quarter: 2021Q1

REPORT INFORMATION
  Report Type: Report from Study
  Country: US (occurrence: US)
  Receive Date: 20210324
  Receipt Date: 20210324
  Transmission Date: 20210420
  Serious: Yes (Death, Other)
  Sender: FDA-Public Use
  Company Number: US-MYLANLABS-2021M1015149

PATIENT
  Age: 59 Year
  Sex: Female

DRUGS (2)
  1. SEROQUEL [Concomitant]
     Active Substance: QUETIAPINE FUMARATE
     Dosage: UNK
  2. CLOZAPINE. [Suspect]
     Active Substance: CLOZAPINE
     Indication: PRODUCT USED FOR UNKNOWN INDICATION
     Dosage: 500 MILLIGRAM

REACTIONS (4)
  - Treatment noncompliance [Unknown]
  - Illness [Unknown]
  - Death [Fatal]
  - Suicide attempt [Unknown]

NARRATIVE: CASE EVENT DATE: 20210215
